APPROVED DRUG PRODUCT: HYDROCODONE BITARTRATE AND PSEUDOEPHEDRINE HYDROCHLORIDE
Active Ingredient: HYDROCODONE BITARTRATE; PSEUDOEPHEDRINE HYDROCHLORIDE
Strength: 5MG/5ML;60MG/5ML
Dosage Form/Route: SOLUTION;ORAL
Application: A204658 | Product #001
Applicant: PADAGIS US LLC
Approved: Apr 29, 2014 | RLD: No | RS: No | Type: DISCN